FAERS Safety Report 8181786-X (Version None)
Quarter: 2012Q1

REPORT INFORMATION
  Report Type: 
  Country: None (occurrence: None)
  Receive Date: 20120302
  Receipt Date: 20111110
  Transmission Date: 20120608
  Serious: No
  Sender: FDA-Public Use
  Company Number: US-AMGEN-USASP2011059163

PATIENT
  Age: 73 Year
  Sex: Female

DRUGS (2)
  1. VICODIN [Concomitant]
     Indication: BACK PAIN
  2. NPLATE [Suspect]
     Indication: IDIOPATHIC THROMBOCYTOPENIC PURPURA
     Dosage: UNK

REACTIONS (3)
  - ROTATOR CUFF SYNDROME [None]
  - ARTHROPATHY [None]
  - MYALGIA [None]
